FAERS Safety Report 21882755 (Version 1)
Quarter: 2023Q1

REPORT INFORMATION
  Report Type: Spontaneous
  Country: US (occurrence: US)
  Receive Date: 20230119
  Receipt Date: 20230119
  Transmission Date: 20230418
  Serious: Yes (Other)
  Sender: FDA-Public Use
  Company Number: US-STRIDES ARCOLAB LIMITED-2022SP011384

PATIENT
  Age: 21 Year
  Sex: Female

DRUGS (3)
  1. METHOTREXATE [Suspect]
     Active Substance: METHOTREXATE
     Indication: Chorioretinitis
     Dosage: UNK
     Route: 048
     Dates: start: 2019, end: 2019
  2. INFLIXIMAB [Suspect]
     Active Substance: INFLIXIMAB
     Indication: Chorioretinitis
     Dosage: 5 MILLIGRAM/KILOGRAM, EVERY 4 WEEKS
     Route: 042
     Dates: start: 2019, end: 2019
  3. INFLIXIMAB [Suspect]
     Active Substance: INFLIXIMAB
     Dosage: 10 MILLIGRAM/KILOGRAM, EVERY 4 WEEKS
     Route: 042
     Dates: start: 2019, end: 2019

REACTIONS (1)
  - Drug ineffective for unapproved indication [Unknown]
